FAERS Safety Report 6635250-7 (Version None)
Quarter: 2010Q1

REPORT INFORMATION
  Report Type: 
  Country: None (occurrence: None)
  Receive Date: 20100315
  Receipt Date: 20100303
  Transmission Date: 20100710
  Serious: Yes (Other)
  Sender: FDA-Public Use
  Company Number: BR-PFIZER INC-2010027768

PATIENT
  Sex: Female
  Weight: 74 kg

DRUGS (4)
  1. CHAMPIX [Suspect]
     Indication: TOBACCO USER
     Dosage: 1 MG, 2X/DAY
     Route: 048
     Dates: start: 20100128
  2. ENALAPRIL [Concomitant]
     Dosage: UNK
  3. PROPRANOLOL [Concomitant]
     Dosage: UNK
  4. GLIBENCLAMIDE [Concomitant]
     Dosage: UNK

REACTIONS (3)
  - AGGRESSION [None]
  - LUNG DISORDER [None]
  - NERVOUSNESS [None]
